FAERS Safety Report 15689774 (Version 1)
Quarter: 2018Q4

REPORT INFORMATION
  Report Type: Spontaneous
  Country: US (occurrence: US)
  Receive Date: 20181205
  Receipt Date: 20181205
  Transmission Date: 20190205
  Serious: Yes (Other)
  Sender: FDA-Public Use
  Company Number: US-SAKK-2018SA325833AA

PATIENT
  Age: 82 Year
  Sex: Female

DRUGS (1)
  1. LANTUS SOLOSTAR [Suspect]
     Active Substance: INSULIN GLARGINE
     Indication: TYPE 2 DIABETES MELLITUS
     Dosage: 40 UNITS AND 26UNITS

REACTIONS (5)
  - Device operational issue [Unknown]
  - Myocardial infarction [Unknown]
  - Product use issue [Unknown]
  - Product storage error [Unknown]
  - Cerebrovascular accident [Unknown]
